FAERS Safety Report 20043678 (Version 2)
Quarter: 2023Q1

REPORT INFORMATION
  Report Type: Spontaneous
  Country: DE (occurrence: DE)
  Receive Date: 20211108
  Receipt Date: 20230207
  Transmission Date: 20230417
  Serious: Yes (Hospitalization, Other)
  Sender: FDA-Public Use
  Company Number: DE-ADRED-06938-01

PATIENT
  Age: 68 Year
  Sex: Male
  Weight: 88 kg

DRUGS (5)
  1. IBUPROFEN [Suspect]
     Active Substance: IBUPROFEN
     Indication: Product used for unknown indication
     Dosage: 800 MG, DEMAND
     Route: 065
  2. TORSEMIDE [Concomitant]
     Active Substance: TORSEMIDE
     Dosage: 50 MILLIGRAM, QD
     Route: 065
  3. DIGITOXIN [Concomitant]
     Active Substance: DIGITOXIN
     Dosage: 0.1 MG, QD (1-0-0-0)
     Route: 065
  4. SPIRONOLACTONE [Concomitant]
     Active Substance: SPIRONOLACTONE
     Dosage: 100 MG, QD (1-0-0-0)
     Route: 065
  5. PIRFENIDONE [Concomitant]
     Active Substance: PIRFENIDONE
     Dosage: 801 MILLIGRAM, 1-1-1-1
     Route: 065

REACTIONS (11)
  - Atrial fibrillation [Unknown]
  - Pulmonary fibrosis [Unknown]
  - Anaemia [Unknown]
  - Dysuria [Unknown]
  - Cough [Unknown]
  - Abdominal distension [Unknown]
  - Haematochezia [Unknown]
  - General physical health deterioration [Unknown]
  - Diarrhoea [Unknown]
  - Abdominal pain [Unknown]
  - Dyspnoea [Unknown]
